FAERS Safety Report 4558968-9 (Version None)
Quarter: 2005Q1

REPORT INFORMATION
  Report Type: 
  Country: None (occurrence: None)
  Receive Date: 20050121
  Receipt Date: 20050112
  Transmission Date: 20050727
  Serious: Yes (Death)
  Sender: FDA-Public Use
  Company Number: MY-MERCK-0501MYS00071

PATIENT
  Sex: Female

DRUGS (4)
  1. CANCIDAS [Suspect]
     Indication: RESPIRATORY TRACT INFECTION FUNGAL
     Route: 042
     Dates: start: 20041229, end: 20041229
  2. CANCIDAS [Suspect]
     Route: 042
     Dates: start: 20041230, end: 20050104
  3. VANCOMYCIN [Concomitant]
     Route: 065
     Dates: start: 20040901, end: 20041201
  4. TAZOCIN [Concomitant]
     Route: 065
     Dates: start: 20040901, end: 20041201

REACTIONS (1)
  - COLLAPSE OF LUNG [None]
